FAERS Safety Report 9447266 (Version 1)
Quarter: 2013Q3

REPORT INFORMATION
  Report Type: Spontaneous
  Country: BE (occurrence: BE)
  Receive Date: 20130808
  Receipt Date: 20130808
  Transmission Date: 20140515
  Serious: Yes (Other)
  Sender: FDA-Public Use
  Company Number: BE-ABBOTT-13X-013-1130509-00

PATIENT
  Sex: Male

DRUGS (3)
  1. FLAMMAZINE [Suspect]
     Indication: THERMAL BURN
     Dosage: MIN 2X DAILY: DURATION: 1 WEEK 2 DAYS
     Route: 061
     Dates: start: 20130318, end: 20130327
  2. FLAMINAL [Suspect]
     Indication: THERMAL BURN
  3. PRETERAX ARGININ [Concomitant]
     Indication: HYPERTENSION

REACTIONS (1)
  - Dermatitis allergic [Unknown]
